FAERS Safety Report 6106826-0 (Version None)
Quarter: 2009Q1

REPORT INFORMATION
  Report Type: 
  Country: None (occurrence: None)
  Receive Date: 20090304
  Receipt Date: 20090220
  Transmission Date: 20090719
  Serious: Yes (Disabling)
  Sender: FDA-Public Use
  Company Number: 2006-01461

PATIENT
  Age: 59 Year
  Sex: Male
  Weight: 83 kg

DRUGS (9)
  1. VELCADE [Suspect]
     Indication: B-CELL LYMPHOMA
     Dosage: 3 MG, INTRAVENOUS,  2 MG
     Route: 042
     Dates: start: 20060120, end: 20080220
  2. SINTROM [Concomitant]
  3. VALACYCLOVIR HCL [Concomitant]
  4. MABTHERA [Concomitant]
  5. NEXIUM [Concomitant]
  6. FORLAX (MACROGOL) [Concomitant]
  7. ARANESP [Concomitant]
  8. PARACETAMOL WITH (CODEINE PHOSPHATE, PARACETAMOL) [Concomitant]
  9. CLORAZEPATE DIPOTASSIUM [Concomitant]

REACTIONS (13)
  - AMAUROSIS [None]
  - ARTHRALGIA [None]
  - BALANCE DISORDER [None]
  - HEADACHE [None]
  - MACULAR OEDEMA [None]
  - MYALGIA [None]
  - OEDEMA PERIPHERAL [None]
  - RETINAL DETACHMENT [None]
  - RETINAL EXUDATES [None]
  - RETINAL HAEMORRHAGE [None]
  - SCOTOMA [None]
  - SINUSITIS [None]
  - THROMBOCYTOPENIA [None]
